APPROVED DRUG PRODUCT: AMINOPHYLLINE IN SODIUM CHLORIDE 0.45%
Active Ingredient: AMINOPHYLLINE
Strength: 100MG/100ML
Dosage Form/Route: INJECTABLE;INJECTION
Application: A088147 | Product #002
Applicant: HOSPIRA INC
Approved: May 3, 1983 | RLD: No | RS: No | Type: DISCN